FAERS Safety Report 25170554 (Version 1)
Quarter: 2025Q2

REPORT INFORMATION
  Report Type: Spontaneous
  Country: CN (occurrence: CN)
  Receive Date: 20250408
  Receipt Date: 20250408
  Transmission Date: 20250717
  Serious: Yes (Hospitalization, Other)
  Sender: BEIGENE
  Company Number: CN-BEIGENE-BGN-2025-005283

PATIENT
  Age: 59 Year
  Weight: 68 kg

DRUGS (10)
  1. TISLELIZUMAB [Suspect]
     Active Substance: TISLELIZUMAB
     Indication: Oesophageal squamous cell carcinoma
  2. TISLELIZUMAB [Suspect]
     Active Substance: TISLELIZUMAB
     Route: 041
  3. TISLELIZUMAB [Suspect]
     Active Substance: TISLELIZUMAB
     Route: 041
  4. TISLELIZUMAB [Suspect]
     Active Substance: TISLELIZUMAB
  5. PACLITAXEL [Suspect]
     Active Substance: PACLITAXEL
     Indication: Oesophageal squamous cell carcinoma
  6. PACLITAXEL [Suspect]
     Active Substance: PACLITAXEL
     Route: 041
  7. PACLITAXEL [Suspect]
     Active Substance: PACLITAXEL
  8. PACLITAXEL [Suspect]
     Active Substance: PACLITAXEL
     Route: 041
  9. CARBOPLATIN [Concomitant]
     Active Substance: CARBOPLATIN
     Indication: Oesophageal squamous cell carcinoma
     Route: 041
  10. CARBOPLATIN [Concomitant]
     Active Substance: CARBOPLATIN

REACTIONS (22)
  - Agranulocytosis [Recovering/Resolving]
  - Diarrhoea [Recovering/Resolving]
  - Mouth ulceration [Recovering/Resolving]
  - Pneumonia [Recovering/Resolving]
  - White blood cell count decreased [Recovering/Resolving]
  - Platelet count decreased [Recovering/Resolving]
  - Red blood cell count decreased [Recovering/Resolving]
  - Haemoglobin decreased [Recovering/Resolving]
  - Somnolence [Recovering/Resolving]
  - Myelosuppression [Unknown]
  - Pseudomonas infection [Recovered/Resolved]
  - Leukoplakia oral [Unknown]
  - Cough [Unknown]
  - Productive cough [Unknown]
  - Haemoptysis [Unknown]
  - Pyrexia [Unknown]
  - Urine output decreased [Unknown]
  - Abdominal distension [Unknown]
  - Abdominal pain [Unknown]
  - Haemophilus infection [Recovered/Resolved]
  - SARS-CoV-2 test positive [Unknown]
  - Oropharyngeal pain [Unknown]
